FAERS Safety Report 5512658-4 (Version None)
Quarter: 2007Q4

REPORT INFORMATION
  Report Type: 
  Country: None (occurrence: None)
  Receive Date: 20071107
  Receipt Date: 20071023
  Transmission Date: 20080405
  Serious: Yes (Other)
  Sender: FDA-Public Use
  Company Number: 2007S1010818

PATIENT
  Age: 84 Year
  Sex: Female
  Weight: 56 kg

DRUGS (7)
  1. TERBINAFINE HCL [Suspect]
     Indication: ONYCHOMYCOSIS
     Dosage: 250 MG; ; ORAL
     Route: 048
  2. ACETYLSALICYLIC ACID SRT [Concomitant]
  3. COMBIVENT /01033501/ [Concomitant]
  4. ISM [Concomitant]
  5. LIPITOR [Concomitant]
  6. RAMIPRIL [Concomitant]
  7. SYMBICORT [Concomitant]

REACTIONS (2)
  - ERYTHEMA MULTIFORME [None]
  - SKIN EXFOLIATION [None]
